FAERS Safety Report 9900671 (Version 1)
Quarter: 2014Q1

REPORT INFORMATION
  Report Type: Report from Study
  Country: US (occurrence: US)
  Receive Date: 20140217
  Receipt Date: 20140217
  Transmission Date: 20141002
  Serious: Yes (Other)
  Sender: FDA-Public Use
  Company Number: US-ROCHE-1331440

PATIENT
  Sex: Female

DRUGS (14)
  1. AVASTIN [Suspect]
     Indication: COLON CANCER
     Dosage: THERAPY DATE:26/NOV/2012 C1D1, 11/DEC/2012 C2D1, 26/DEC/2012 C3D1, 08/JAN/2013 C4D1, 22/JAN/2013 C5D
     Route: 042
  2. OXALIPLATIN [Concomitant]
     Dosage: THERAPY DATE:26/NOV/2012 C1D1, 11/DEC/2012 C2D1, 26/DEC/2012 C3D1, 08/JAN/2013 C4D1, 22/JAN/2013 C5D
     Route: 042
  3. ALOXI [Concomitant]
     Dosage: THERAPY DATE:26/NOV/2012 C1D1, 11/DEC/2012 C2D1, 26/DEC/2012 C3D1, 08/JAN/2013 C4D1, 22/JAN/2013 C5D
     Route: 042
  4. LEUCOVORIN CALCIUM [Concomitant]
     Dosage: THERAPY DATE:26/NOV/2012 C1D1, 11/DEC/2012 C2D1, 26/DEC/2012 C3D1, 08/JAN/2013 C4D1, 22/JAN/2013 C5D
     Route: 042
  5. DEXAMETHASONE [Concomitant]
     Dosage: THERAPY DATE:26/NOV/2012 C1D1, 11/DEC/2012 C2D1, 26/DEC/2012 C3D1, 08/JAN/2013 C4D1, 22/JAN/2013 C5D
     Route: 042
  6. 5-FU [Concomitant]
     Dosage: THERAPY DATE: 26/NOV/2012 C1D1, 11/DEC/2012 C2D1, 26/DEC/2012 C3D1, 08/JAN/2013 C4D1, 22/JAN/2013 C5
     Route: 040
  7. 5-FU [Concomitant]
     Dosage: THERAPY DATE:26/NOV/2012 C1D1
     Route: 041
  8. 5-FU [Concomitant]
     Dosage: THERAPY DATE:11/DEC/2012 C2D1, 26/DEC/2012 C3D1, 08/JAN/2013 C4D1, 22/JAN/2013 C5D1, 04/FEB/2013 C6D
     Route: 040
  9. EMEND [Concomitant]
     Dosage: THERAPY DATE:11/DEC/2012 C2D1, 26/DEC/2012 C3D1, 08/JAN/2013 C4D1, 22/JAN/2013 C5D1, 04/FEB/2013 C6D
     Route: 042
     Dates: start: 20121211
  10. TYLENOL [Concomitant]
     Dosage: THERAPY DATE:26/NOV/2012 C1D1, 11/DEC/2012 C2D1, 26/DEC/2012 C3D1, 08/JAN/2013 C4D1, 22/JAN/2013 C5D
     Route: 048
  11. CALCIUM GLUCONATE [Concomitant]
     Dosage: THERAPY DATE:26/NOV/2012 C1D1, 11/DEC/2012 C2D1, 26/DEC/2012 C3D1, 08/JAN/2013 C4D1, 22/JAN/2013 C5D
     Route: 042
  12. MAGNESIUM SULFATE [Concomitant]
     Dosage: THERAPY DATE:26/NOV/2012 C1D1, 11/DEC/2012 C2D1, 26/DEC/2012 C3D1, 08/JAN/2013 C4D1, 22/JAN/2013 C5D
     Route: 042
  13. METHYLPREDNISOLONE SODIUM SUCCINATE [Concomitant]
     Dosage: THERAPY DATE:26/NOV/2012 C1D1,
     Route: 042
  14. FAMOTIDINE [Concomitant]
     Dosage: THERAPY DATE: 22/JAN/2013 C5D1,
     Route: 042

REACTIONS (1)
  - Metastatic neoplasm [Unknown]
